FAERS Safety Report 23366124 (Version 1)
Quarter: 2024Q1

REPORT INFORMATION
  Report Type: Spontaneous
  Country: US (occurrence: US)
  Receive Date: 20240104
  Receipt Date: 20240104
  Transmission Date: 20240409
  Serious: No
  Sender: FDA-Public Use
  Company Number: US-ChurchDwight-2023-CDW-01987

PATIENT

DRUGS (1)
  1. ZICAM COLD REMEDY RAPIDMELTS [Suspect]
     Active Substance: HOMEOPATHICS\ZINC ACETATE\ZINC GLUCONATE
     Indication: Product used for unknown indication
     Route: 048

REACTIONS (4)
  - Ageusia [Unknown]
  - Tongue discomfort [Unknown]
  - Oral pain [Unknown]
  - Oral discomfort [Unknown]
